FAERS Safety Report 5189877-2 (Version None)
Quarter: 2006Q4

REPORT INFORMATION
  Report Type: 
  Country: None (occurrence: None)
  Receive Date: 20061218
  Receipt Date: 20061206
  Transmission Date: 20070319
  Serious: Yes (Other)
  Sender: FDA-Public Use
  Company Number: 2006122460

PATIENT
  Age: 61 Year
  Sex: Female
  Weight: 65 kg

DRUGS (4)
  1. AROMASIN [Suspect]
     Indication: BREAST CANCER
     Dosage: 25 MG (25 MG, DAILY), ORAL
     Route: 048
     Dates: start: 20060320, end: 20060916
  2. OSTAC (CLODRONATE DISODIUM) [Concomitant]
  3. AMITRIPTYLINE HCL [Concomitant]
  4. NUTRITIONAL SUPPLEMENT (GENERAL NUTRIENTS) [Concomitant]

REACTIONS (2)
  - METASTASES TO LIVER [None]
  - PARAESTHESIA [None]
